FAERS Safety Report 8431312-2 (Version None)
Quarter: 2012Q2

REPORT INFORMATION
  Report Type: 
  Country: None (occurrence: None)
  Receive Date: 20120613
  Receipt Date: 20120606
  Transmission Date: 20120825
  Serious: Yes (Hospitalization)
  Sender: FDA-Public Use
  Company Number: US-BIOGENIDEC-2012BI013185

PATIENT
  Sex: Female

DRUGS (3)
  1. AVONEX [Suspect]
     Route: 030
     Dates: start: 20101013
  2. AVONEX [Suspect]
     Route: 030
     Dates: start: 20051021, end: 20060929
  3. AVONEX [Suspect]
     Indication: MULTIPLE SCLEROSIS
     Route: 030
     Dates: start: 20010105, end: 20010905

REACTIONS (5)
  - HYPERTENSION [None]
  - COMPLEX REGIONAL PAIN SYNDROME [None]
  - MULTIPLE SCLEROSIS RELAPSE [None]
  - RASH [None]
  - ASTHENIA [None]
